FAERS Safety Report 16874016 (Version 1)
Quarter: 2019Q4

REPORT INFORMATION
  Report Type: Report from Study
  Country: US (occurrence: US)
  Receive Date: 20191001
  Receipt Date: 20191001
  Transmission Date: 20200122
  Serious: Yes (Other)
  Sender: FDA-Public Use
  Company Number: US-PFIZER INC-2019197246

PATIENT
  Age: 62 Year
  Sex: Female

DRUGS (1)
  1. IBRANCE [Suspect]
     Active Substance: PALBOCICLIB
     Indication: BREAST CANCER FEMALE
     Dosage: 100 MG, CYCLIC (DAILY FOR 21 DAYS THEN OFF FOR 7 DAYS)
     Route: 048
     Dates: start: 20190403, end: 20190903

REACTIONS (26)
  - Neck pain [Not Recovered/Not Resolved]
  - Deafness [Unknown]
  - Nausea [Not Recovered/Not Resolved]
  - Pain in extremity [Unknown]
  - Pruritus [Recovering/Resolving]
  - Neuropathy peripheral [Unknown]
  - Oropharyngeal pain [Not Recovered/Not Resolved]
  - Bronchitis [Unknown]
  - Urinary tract infection [Unknown]
  - Dizziness [Unknown]
  - Paraesthesia [Not Recovered/Not Resolved]
  - Rash [Recovering/Resolving]
  - Constipation [Unknown]
  - Stomatitis [Unknown]
  - Insomnia [Unknown]
  - Glossodynia [Unknown]
  - Chest pain [Unknown]
  - Tinnitus [Unknown]
  - Ear pain [Not Recovered/Not Resolved]
  - Pain in jaw [Unknown]
  - Blood pressure abnormal [Unknown]
  - Fatigue [Unknown]
  - Oral pain [Not Recovered/Not Resolved]
  - Back pain [Not Recovered/Not Resolved]
  - Decreased appetite [Unknown]
  - White blood cell count decreased [Unknown]

NARRATIVE: CASE EVENT DATE: 2019
